FAERS Safety Report 8353475-X (Version None)
Quarter: 2012Q2

REPORT INFORMATION
  Report Type: 
  Country: None (occurrence: None)
  Receive Date: 20120511
  Receipt Date: 20110331
  Transmission Date: 20120825
  Serious: No
  Sender: FDA-Public Use
  Company Number: US-GLAXOSMITHKLINE-A0921904A

PATIENT
  Age: 62 Year
  Sex: Female

DRUGS (12)
  1. TYKERB [Suspect]
     Dosage: 1000MG PER DAY
     Route: 048
  2. LEVOTHYROXINE SODIUM [Concomitant]
  3. PEPCID [Concomitant]
  4. LISINOPRIL [Concomitant]
  5. SIMVASTATIN [Concomitant]
  6. ZINC SULFATE [Concomitant]
  7. LEVOTHYROXINE SODIUM [Concomitant]
  8. MUPIROCIN [Concomitant]
  9. CEPHALEXIN [Concomitant]
  10. ASPIRIN [Concomitant]
  11. DILTIAZEM [Concomitant]
  12. VITAMIN C [Concomitant]

REACTIONS (4)
  - DYSPHAGIA [None]
  - NAIL INFECTION [None]
  - NASOPHARYNGITIS [None]
  - DIARRHOEA [None]
